FAERS Safety Report 14661097 (Version 1)
Quarter: 2018Q1

REPORT INFORMATION
  Report Type: Spontaneous
  Country: US (occurrence: US)
  Receive Date: 20180320
  Receipt Date: 20180320
  Transmission Date: 20180509
  Serious: No
  Sender: FDA-Public Use
  Company Number: US-GLAXOSMITHKLINE-US2018045476

PATIENT
  Sex: Female

DRUGS (8)
  1. ELAVIL [Concomitant]
     Active Substance: AMITRIPTYLINE HYDROCHLORIDE
  2. BENLYSTA [Suspect]
     Active Substance: BELIMUMAB
     Indication: SYSTEMIC LUPUS ERYTHEMATOSUS
     Dosage: 200 MG, WE
     Route: 058
     Dates: start: 20180315
  3. HYDROCHLOROTHIAZIDE. [Concomitant]
     Active Substance: HYDROCHLOROTHIAZIDE
  4. BENLYSTA [Suspect]
     Active Substance: BELIMUMAB
     Indication: SYSTEMIC LUPUS ERYTHEMATOSUS
     Dosage: UNK UNK, U
     Route: 042
     Dates: end: 201802
  5. GABAPENTIN. [Concomitant]
     Active Substance: GABAPENTIN
  6. PREDNISONE. [Concomitant]
     Active Substance: PREDNISONE
  7. OMEPRAZOLE. [Concomitant]
     Active Substance: OMEPRAZOLE
  8. VOLTAREN [Concomitant]
     Active Substance: DICLOFENAC SODIUM

REACTIONS (2)
  - Neuropathy peripheral [Unknown]
  - Injection site pain [Recovered/Resolved]
